FAERS Safety Report 4322180-9 (Version None)
Quarter: 2004Q1

REPORT INFORMATION
  Report Type: 
  Country: None (occurrence: None)
  Receive Date: 20040319
  Receipt Date: 20040302
  Transmission Date: 20041129
  Serious: Yes (Hospitalization)
  Sender: FDA-Public Use
  Company Number: CEL-2004-00210-ROC

PATIENT
  Age: 45 Year
  Sex: Female

DRUGS (7)
  1. DELSYM [Suspect]
     Indication: COUGH
     Dosage: SWIGGED ONCE PO
     Route: 048
     Dates: start: 20040218, end: 20040218
  2. DELSYM [Suspect]
  3. ALEVE [Concomitant]
  4. ENPRESSE [Concomitant]
  5. ALCOHOL (ETHANOL) [Concomitant]
  6. ALBUTEROL [Concomitant]
  7. COMBIVENT [Concomitant]

REACTIONS (12)
  - ABNORMAL BEHAVIOUR [None]
  - ADVERSE DRUG REACTION [None]
  - ALCOHOL USE [None]
  - AMNESIA [None]
  - ANXIETY [None]
  - DIFFICULTY IN WALKING [None]
  - DRUG SCREEN POSITIVE [None]
  - HYPOKINESIA [None]
  - MEDICATION ERROR [None]
  - MUSCLE DISORDER [None]
  - PARANOIA [None]
  - STARING [None]
